FAERS Safety Report 5514296-6 (Version None)
Quarter: 2007Q4

REPORT INFORMATION
  Report Type: 
  Country: None (occurrence: None)
  Receive Date: 20071113
  Receipt Date: 20071108
  Transmission Date: 20080405
  Serious: Yes (Other)
  Sender: FDA-Public Use
  Company Number: GB-MERCK-0711GBR00050

PATIENT
  Age: 56 Year
  Sex: Female

DRUGS (4)
  1. COZAAR [Suspect]
     Route: 048
     Dates: start: 20050425, end: 20050430
  2. COZAAR [Suspect]
     Route: 048
     Dates: start: 20050430, end: 20050504
  3. COZAAR [Suspect]
     Route: 048
     Dates: start: 20050414, end: 20050419
  4. COZAAR [Suspect]
     Route: 048
     Dates: start: 20050511, end: 20050523

REACTIONS (1)
  - OSTEOARTHRITIS [None]
